FAERS Safety Report 4775975-1 (Version None)
Quarter: 2005Q3

REPORT INFORMATION
  Report Type: 
  Country: None (occurrence: None)
  Receive Date: 20050914
  Receipt Date: 20050317
  Transmission Date: 20060218
  Serious: Yes (Hospitalization)
  Sender: FDA-Public Use
  Company Number: 163-20785-05030507

PATIENT
  Age: 62 Year
  Sex: Male

DRUGS (13)
  1. THALOMID [Suspect]
     Indication: MULTIPLE MYELOMA
     Dosage: ORAL
     Route: 048
     Dates: start: 20040825
  2. ATIVAN [Suspect]
     Indication: ANXIETY
     Dosage: 10 MG, DAILY, ORAL
     Route: 048
     Dates: start: 20041108, end: 20041108
  3. VELCADE [Suspect]
     Indication: MULTIPLE MYELOMA
     Dates: start: 20040825
  4. DEXAMETHASONE [Suspect]
     Indication: MULTIPLE MYELOMA
     Dates: start: 20040825
  5. CISPLATIN [Suspect]
     Indication: MULTIPLE MYELOMA
     Dates: start: 20040825
  6. ADRIAMYCIN PFS [Suspect]
     Indication: MULTIPLE MYELOMA
     Dates: start: 20040825
  7. CYCLOPHOSPHAMIDE [Suspect]
     Indication: MULTIPLE MYELOMA
     Dates: start: 20040825
  8. ETOPOSIDE [Suspect]
     Indication: MULTIPLE MYELOMA
     Dates: start: 20040825
  9. FOLATE (FOLATE SODIUM) [Concomitant]
  10. NIFEREX (POLYSACCHARIDE-IRON COMPLEX) [Concomitant]
  11. CALCIUM (CALCIUM) [Concomitant]
  12. ARANESP [Concomitant]
  13. MAGNESIUM OXIDE (MAGNESIUM OXIDE) [Concomitant]

REACTIONS (4)
  - AGITATION [None]
  - CONFUSIONAL STATE [None]
  - HYPOVENTILATION [None]
  - MEDICATION ERROR [None]
